FAERS Safety Report 5309315-6 (Version None)
Quarter: 2007Q2

REPORT INFORMATION
  Report Type: 
  Country: None (occurrence: None)
  Receive Date: 20070425
  Receipt Date: 20070425
  Transmission Date: 20071010
  Serious: Yes (Other)
  Sender: FDA-Public Use
  Company Number: None

PATIENT
  Sex: Female
  Weight: 74.8435 kg

DRUGS (1)
  1. NARDIL [Suspect]
     Indication: ANXIETY
     Dates: start: 19820101

REACTIONS (1)
  - PHARMACEUTICAL PRODUCT COMPLAINT [None]
